FAERS Safety Report 7012456-9 (Version None)
Quarter: 2010Q3

REPORT INFORMATION
  Report Type: 
  Country: None (occurrence: None)
  Receive Date: 20100924
  Receipt Date: 20100914
  Transmission Date: 20110219
  Serious: Yes (Hospitalization)
  Sender: FDA-Public Use
  Company Number: US-SANOFI-AVENTIS-2010SA055412

PATIENT
  Sex: Female
  Weight: 79.3 kg

DRUGS (20)
  1. LOVENOX [Suspect]
     Route: 058
     Dates: start: 20080516, end: 20080518
  2. LOVENOX [Suspect]
     Route: 058
     Dates: start: 20080516, end: 20080518
  3. HEPARIN SODIUM [Suspect]
     Route: 042
     Dates: start: 20080501, end: 20080501
  4. VERAPAMIL HYDROCHLORIDE [Concomitant]
  5. LIPITOR [Concomitant]
  6. NAPROXEN [Concomitant]
  7. TRAMADOL HYDROCHLORIDE [Concomitant]
  8. ATENOLOL [Concomitant]
  9. HYDROCHLOROTHIAZIDE [Concomitant]
  10. TIZANIDINE HYDROCHLORIDE [Concomitant]
  11. HYDRALAZINE HYDROCHLORIDE [Concomitant]
  12. ANTIINFLAMMATORY/ANTIRHEUMATIC NON-STEROIDS [Concomitant]
  13. POTASSIUM CHLORIDE [Concomitant]
  14. ROPINIROLE HYDROCHLORIDE [Concomitant]
  15. SERTRALINE HYDROCHLORIDE [Concomitant]
  16. VANCOMYCIN HYCHLORIDE [Concomitant]
  17. CALCIUM [Concomitant]
  18. BENADRYL ^ACHE^ [Concomitant]
  19. MORPHINE [Concomitant]
  20. NALOXONE [Concomitant]

REACTIONS (8)
  - ASTHENIA [None]
  - CHEST PAIN [None]
  - DIARRHOEA [None]
  - HYPERHIDROSIS [None]
  - NAUSEA [None]
  - SKIN DISCOLOURATION [None]
  - THROMBOSIS [None]
  - VOMITING [None]
